FAERS Safety Report 17801492 (Version 8)
Quarter: 2021Q1

REPORT INFORMATION
  Report Type: Other
  Country: BR (occurrence: BR)
  Receive Date: 20200519
  Receipt Date: 20210113
  Transmission Date: 20210419
  Serious: Yes (Death, Hospitalization)
  Sender: FDA-Public Use
  Company Number: BR-ROCHE-2578362

PATIENT
  Age: 73 Year
  Sex: Male
  Weight: 77 kg

DRUGS (20)
  1. ESBRIET [Suspect]
     Active Substance: PIRFENIDONE
     Dosage: 9 TIMES A DAY
     Route: 048
     Dates: start: 20200401, end: 20200402
  2. GLIBENCLAMIDE [Concomitant]
     Active Substance: GLYBURIDE
     Indication: DIABETES MELLITUS
     Dosage: 1 TABLET 3 TIMES A DAY
  3. SPIRONOLACTONE. [Concomitant]
     Active Substance: SPIRONOLACTONE
     Indication: HYPERTENSION
     Dosage: 1 TABLET IN THE MORNING AND ANOTHER 1 AT NIGHT
  4. METFORMIN [Concomitant]
     Active Substance: METFORMIN HYDROCHLORIDE
     Dosage: 1 TABLET AFTER BREAKFAST AND ANOTHER 1 IN THE AFTERNOON
  5. SPIRONOLACTONE. [Concomitant]
     Active Substance: SPIRONOLACTONE
     Dosage: 1 TABLET AT NIGHT
  6. ESBRIET [Suspect]
     Active Substance: PIRFENIDONE
     Route: 048
  7. SIMVASTATIN. [Concomitant]
     Active Substance: SIMVASTATIN
     Dosage: 1 TABLET IN THE MORNING AND ANOTHER 1 IN THE AFTERNOON
  8. ESBRIET [Suspect]
     Active Substance: PIRFENIDONE
     Route: 048
     Dates: start: 20200212
  9. LOSARTAN. [Concomitant]
     Active Substance: LOSARTAN
     Indication: HYPERTENSION
     Dosage: 1 TABLET IN THE MORNING AND ANOTHER 1 AT NIGHT
  10. CARVEDILOL. [Concomitant]
     Active Substance: CARVEDILOL
     Dosage: 1 TABLET IN THE MORNING AND ANOTHER 1 IN THE AFTERNOON
  11. ESBRIET [Suspect]
     Active Substance: PIRFENIDONE
     Indication: IDIOPATHIC PULMONARY FIBROSIS
     Dosage: 9 CAPSULES A DAY
     Route: 048
     Dates: start: 20200324
  12. ESBRIET [Suspect]
     Active Substance: PIRFENIDONE
     Dosage: 3 CAPSULES A DAY
     Route: 048
     Dates: start: 20200408
  13. RIVOTRIL [Suspect]
     Active Substance: CLONAZEPAM
     Indication: SLEEP DISORDER
     Route: 065
  14. METFORMIN [Concomitant]
     Active Substance: METFORMIN HYDROCHLORIDE
     Indication: DIABETES MELLITUS
     Dosage: 1 TABLET 3 TIMES A DAY
  15. SIMVASTATIN. [Concomitant]
     Active Substance: SIMVASTATIN
     Indication: HYPERTENSION
     Dosage: 1 TABLET AT NIGHT
  16. ESBRIET [Suspect]
     Active Substance: PIRFENIDONE
     Route: 048
  17. ESBRIET [Suspect]
     Active Substance: PIRFENIDONE
     Route: 048
  18. ESBRIET [Suspect]
     Active Substance: PIRFENIDONE
     Route: 048
  19. FUROSEMIDE. [Concomitant]
     Active Substance: FUROSEMIDE
     Dosage: 1 TABLET TWICE A DAY
  20. CARVEDILOL. [Concomitant]
     Active Substance: CARVEDILOL
     Indication: HYPERTENSION
     Dosage: 1 TABLET TWICE A DAY

REACTIONS (24)
  - Vomiting [Recovered/Resolved]
  - Nausea [Unknown]
  - Fatigue [Recovered/Resolved]
  - Blood pressure increased [Recovering/Resolving]
  - Emotional distress [Recovering/Resolving]
  - Discomfort [Unknown]
  - Oxygen saturation decreased [Unknown]
  - Cough [Recovered/Resolved]
  - Chills [Recovering/Resolving]
  - Pruritus [Recovering/Resolving]
  - Fatigue [Recovering/Resolving]
  - Respiratory failure [Fatal]
  - Dyspnoea [Unknown]
  - Intentional product use issue [Unknown]
  - Chest pain [Recovered/Resolved]
  - Malaise [Recovered/Resolved]
  - Decreased appetite [Unknown]
  - Off label use [Unknown]
  - Oxygen saturation decreased [Recovered/Resolved]
  - Nervousness [Recovering/Resolving]
  - Influenza [Not Recovered/Not Resolved]
  - Fatigue [Unknown]
  - Lung disorder [Recovered/Resolved]
  - Chest pain [Unknown]

NARRATIVE: CASE EVENT DATE: 202005
